FAERS Safety Report 9841047 (Version 1)
Quarter: 2014Q1

REPORT INFORMATION
  Report Type: Spontaneous
  Country: US (occurrence: US)
  Receive Date: 20140124
  Receipt Date: 20140124
  Transmission Date: 20141002
  Serious: No
  Sender: FDA-Public Use
  Company Number: US-009507513-1401USA011060

PATIENT
  Age: 18 Year
  Sex: Male

DRUGS (2)
  1. DEXAMETHASONE [Suspect]
  2. PREDNISONE [Suspect]

REACTIONS (1)
  - Blood glucose increased [Unknown]
